FAERS Safety Report 18650084 (Version 7)
Quarter: 2021Q2

REPORT INFORMATION
  Report Type: Report from Study
  Country: CN (occurrence: CN)
  Receive Date: 20201222
  Receipt Date: 20210421
  Transmission Date: 20210717
  Serious: Yes (Hospitalization)
  Sender: FDA-Public Use
  Company Number: NVSC2020CN334482

PATIENT
  Age: 48 Year
  Sex: Male

DRUGS (14)
  1. TRAMETINIB [Suspect]
     Active Substance: TRAMETINIB
     Dosage: 1.5 MG, QD
     Route: 048
     Dates: start: 20201224
  2. DIAMMONIUM GLYCYRRHIZINATE [Concomitant]
     Active Substance: HERBALS\DIAMMONIUM GLYCYRRHIZINATE
     Indication: ALANINE AMINOTRANSFERASE INCREASED
  3. POLYENE PHOSPHATIDYLCHOLINE [Concomitant]
     Active Substance: PHOSPHOLIPID
     Indication: ALANINE AMINOTRANSFERASE INCREASED
  4. TRAMETINIB [Suspect]
     Active Substance: TRAMETINIB
     Indication: NON-SMALL CELL LUNG CANCER METASTATIC
     Dosage: 2 MG, QD
     Route: 048
     Dates: start: 20201126, end: 20201213
  5. CHLORPHENAMINE MALEATE [Concomitant]
     Active Substance: CHLORPHENIRAMINE MALEATE
     Indication: RASH
     Dosage: UNK
     Route: 065
     Dates: start: 20201208, end: 20201218
  6. POLYENE PHOSPHATIDYLCHOLINE [Concomitant]
     Active Substance: PHOSPHOLIPID
     Indication: ASPARTATE AMINOTRANSFERASE INCREASED
     Dosage: UNK
     Route: 065
     Dates: start: 20201214, end: 20201221
  7. INDOMETACIN [Concomitant]
     Active Substance: INDOMETHACIN
     Indication: PYREXIA
     Dosage: UNK
     Route: 065
     Dates: start: 20201213, end: 20201213
  8. CALCITONIN [Concomitant]
     Active Substance: CALCITONIN
     Indication: PROPHYLAXIS
     Dosage: UNK
     Route: 065
  9. POTASSIUM CHLORIDE. [Concomitant]
     Active Substance: POTASSIUM CHLORIDE
     Indication: HYPOKALAEMIA
     Dosage: 0.5 G, BID
     Route: 048
     Dates: start: 20201214, end: 20201221
  10. SODIUM CHLORIDE. [Concomitant]
     Active Substance: SODIUM CHLORIDE
     Indication: HYPONATRAEMIA
     Dosage: 50 ML, QD
     Route: 042
     Dates: start: 20201214, end: 20201215
  11. RECOMBINANT HUMAN THROMBOPOIETIN [Concomitant]
     Active Substance: THROMBOPOIETIN
     Indication: PLATELET COUNT DECREASED
     Dosage: UNK
     Route: 065
     Dates: start: 20201214, end: 20201215
  12. DIAMMONIUM GLYCYRRHIZINATE [Concomitant]
     Active Substance: HERBALS\DIAMMONIUM GLYCYRRHIZINATE
     Indication: ASPARTATE AMINOTRANSFERASE INCREASED
     Dosage: UNK
     Route: 065
     Dates: start: 20201214, end: 20201221
  13. DABRAFENIB [Suspect]
     Active Substance: DABRAFENIB
     Indication: NON-SMALL CELL LUNG CANCER METASTATIC
     Dosage: 150 MG, Q12H
     Route: 048
     Dates: start: 20201126
  14. POTASSIUM CHLORIDE. [Concomitant]
     Active Substance: POTASSIUM CHLORIDE
     Dosage: UNK
     Route: 048
     Dates: start: 20201215, end: 20201215

REACTIONS (1)
  - Upper respiratory tract infection [Recovered/Resolved]

NARRATIVE: CASE EVENT DATE: 20201215
